FAERS Safety Report 16384360 (Version 1)
Quarter: 2019Q2

REPORT INFORMATION
  Report Type: Spontaneous
  Country: GB (occurrence: GB)
  Receive Date: 20190603
  Receipt Date: 20190603
  Transmission Date: 20190711
  Serious: Yes (Life-Threatening)
  Sender: FDA-Public Use
  Company Number: GB-MYLANLABS-2019M1051158

PATIENT
  Age: 83 Year
  Sex: Male

DRUGS (6)
  1. MIRTAZAPINE. [Concomitant]
     Active Substance: MIRTAZAPINE
     Dosage: UNK
  2. SERTRALINE [Concomitant]
     Active Substance: SERTRALINE HYDROCHLORIDE
     Dosage: UNK
  3. LORAZEPAM. [Concomitant]
     Active Substance: LORAZEPAM
     Dosage: UNK
  4. OCTASA [Concomitant]
     Active Substance: MESALAMINE
     Dosage: 40 MILLIGRAM,MODIFIED RELEASE
  5. MEMANTINE. [Suspect]
     Active Substance: MEMANTINE
     Indication: AGITATION
     Dosage: 5 MILLIGRAM
     Route: 048
     Dates: start: 20181010, end: 20181014
  6. CLOPIDOGREL [Concomitant]
     Active Substance: CLOPIDOGREL BISULFATE
     Dosage: UNK

REACTIONS (4)
  - Agitation [Recovering/Resolving]
  - Suicide attempt [Unknown]
  - Condition aggravated [Recovering/Resolving]
  - Suicidal ideation [Recovering/Resolving]

NARRATIVE: CASE EVENT DATE: 20181012
